FAERS Safety Report 9029385 (Version 1)
Quarter: 2013Q1

REPORT INFORMATION
  Report Type: Spontaneous
  Country: US (occurrence: US)
  Receive Date: 20130125
  Receipt Date: 20130125
  Transmission Date: 20140127
  Serious: Yes (Hospitalization)
  Sender: FDA-Public Use
  Company Number: US-ENDO PHARMACEUTICALS INC.-HCDA20130032

PATIENT
  Age: 72 None
  Sex: Female
  Weight: 47.9 kg

DRUGS (4)
  1. HYDROCODONE/ACETAMINOPHEN 10MG/500MG [Suspect]
     Indication: PAIN
     Dosage: 10/500MG
     Route: 065
     Dates: end: 201211
  2. XANAX [Concomitant]
     Indication: PRODUCT USED FOR UNKNOWN INDICATION
     Dosage: UNK
     Route: 065
  3. SPIRIVA [Concomitant]
     Indication: PRODUCT USED FOR UNKNOWN INDICATION
     Dosage: UNK
     Route: 065
  4. MILK THISTLE [Concomitant]
     Indication: DETOXIFICATION
     Dosage: UNK
     Route: 065

REACTIONS (3)
  - Depression [Recovering/Resolving]
  - Weight decreased [Recovering/Resolving]
  - Liver disorder [Unknown]
